FAERS Safety Report 5110295-7 (Version None)
Quarter: 2006Q3

REPORT INFORMATION
  Report Type: 
  Country: None (occurrence: None)
  Receive Date: 20060918
  Receipt Date: 20060906
  Transmission Date: 20061208
  Serious: Yes (Other)
  Sender: FDA-Public Use
  Company Number: 2006110057

PATIENT
  Age: 67 Year
  Sex: Female

DRUGS (1)
  1. ALDAZIDA (HYDROCHLOROTHIAZIDE, SPIRONOLACTONE) [Suspect]
     Indication: POLYURIA
     Dosage: ORAL
     Route: 048

REACTIONS (3)
  - BREAST CANCER FEMALE [None]
  - DIABETES MELLITUS [None]
  - RENAL CELL CARCINOMA STAGE UNSPECIFIED [None]
